FAERS Safety Report 7086155-1 (Version None)
Quarter: 2010Q4

REPORT INFORMATION
  Report Type: 
  Country: None (occurrence: None)
  Receive Date: 20101105
  Receipt Date: 20101102
  Transmission Date: 20110411
  Serious: Yes (Death)
  Sender: FDA-Public Use
  Company Number: US-GENENTECH-308296

PATIENT
  Sex: Male
  Weight: 50 kg

DRUGS (1)
  1. RANIBIZUMAB [Suspect]
     Indication: CHOROIDAL NEOVASCULARISATION
     Dosage: 0.05 MG, 1/MONTH
     Route: 031
     Dates: start: 20091222, end: 20100809

REACTIONS (1)
  - DEATH [None]
